FAERS Safety Report 10270864 (Version 3)
Quarter: 2014Q3

REPORT INFORMATION
  Report Type: Spontaneous
  Country: US (occurrence: None)
  Receive Date: 20140627
  Receipt Date: 20140711
  Transmission Date: 20150326
  Serious: Yes (Hospitalization)
  Sender: FDA-Public Use
  Company Number: UNT-2014-000564

PATIENT
  Age: 53 Year
  Sex: Female
  Weight: 49.9 kg

DRUGS (1)
  1. TYVASO [Suspect]
     Active Substance: TREPROSTINIL
     Indication: PRODUCT USED FOR UNKNOWN INDICATION
     Dosage: 18-54 MCG.
     Route: 055
     Dates: start: 20120705

REACTIONS (3)
  - Fall [None]
  - Mental disorder [None]
  - Lumbar vertebral fracture [None]

NARRATIVE: CASE EVENT DATE: 20140415
